FAERS Safety Report 9231644 (Version 1)
Quarter: 2013Q1

REPORT INFORMATION
  Report Type: Spontaneous
  Country: US (occurrence: None)
  Receive Date: 20121031
  Receipt Date: 20121031
  Transmission Date: 20140127
  Serious: Yes (Other)
  Sender: FDA-Public Use
  Company Number: PHEH2012US017148

PATIENT
  Age: 56 Year
  Sex: Female

DRUGS (3)
  1. GILENYA (FTY) CAPSULE, 0.5MG [Suspect]
     Indication: MULTIPLE SCLEROSIS
     Route: 048
     Dates: start: 20120829
  2. PROPENTIN [Concomitant]
  3. CELEXA (CITALOPRAM HYDROBROMIDE) [Concomitant]

REACTIONS (2)
  - Heart rate decreased [None]
  - Lethargy [None]
